FAERS Safety Report 7077377-4 (Version None)
Quarter: 2010Q4

REPORT INFORMATION
  Report Type: 
  Country: None (occurrence: None)
  Receive Date: 20101021
  Receipt Date: 20101006
  Transmission Date: 20110411
  Serious: Yes (Hospitalization)
  Sender: FDA-Public Use
  Company Number: 1000016832

PATIENT
  Age: 87 Year
  Sex: Female

DRUGS (8)
  1. ESCITALOPRAM [Suspect]
     Dosage: 5 MG (5 MG, 1 N 1 D), ORAL
     Route: 048
  2. HALDOL [Suspect]
     Dosage: 47 DROPS (47 GTT, 1 IN 1 D), ORAL
     Route: 048
  3. OXAZEPAM [Suspect]
     Dosage: ORAL
     Route: 048
  4. EXELON [Suspect]
     Dosage: 1 DOSAGE FORM (1 DOSAGE FORMS, 1 IN 1 D), CUTANEOUS
     Route: 003
  5. SINGULAIR [Concomitant]
  6. PREVISCAN (FLUINDIONE) [Concomitant]
  7. RAMIPRIL [Concomitant]
  8. SYMBICORT TURBUHALER (SYMBICRT TURBUHALER) (SYMBICORT TURBUHALER) [Concomitant]

REACTIONS (7)
  - AGITATION [None]
  - AKINESIA [None]
  - DYSSTASIA [None]
  - FALL [None]
  - HAEMATOMA [None]
  - INTERNATIONAL NORMALISED RATIO INCREASED [None]
  - PARKINSONIAN GAIT [None]
